FAERS Safety Report 15852765 (Version 1)
Quarter: 2019Q1

REPORT INFORMATION
  Report Type: Spontaneous
  Country: US (occurrence: US)
  Receive Date: 20190122
  Receipt Date: 20190122
  Transmission Date: 20190417
  Serious: No
  Sender: FDA-Public Use
  Company Number: US-PERRIGO-18US014366

PATIENT
  Age: 56 Year
  Sex: Female
  Weight: 63.49 kg

DRUGS (2)
  1. PERMETHRIN. [Suspect]
     Active Substance: PERMETHRIN
     Indication: ACARODERMATITIS
     Dosage: 30 ML, NIGHTLY
     Route: 061
     Dates: start: 20181118, end: 20181122
  2. PROZAC [Concomitant]
     Active Substance: FLUOXETINE HYDROCHLORIDE
     Indication: BIPOLAR DISORDER
     Dosage: UNK
     Route: 065
     Dates: start: 2003

REACTIONS (7)
  - Application site burn [Not Recovered/Not Resolved]
  - Off label use [Recovered/Resolved]
  - Application site exfoliation [Not Recovered/Not Resolved]
  - Overdose [Recovered/Resolved]
  - Application site irritation [Not Recovered/Not Resolved]
  - Application site rash [Not Recovered/Not Resolved]
  - Application site swelling [Not Recovered/Not Resolved]

NARRATIVE: CASE EVENT DATE: 20181118
